FAERS Safety Report 16409150 (Version 1)
Quarter: 2019Q3

REPORT INFORMATION
  Report Type: Spontaneous
  Country: US (occurrence: US)
  Receive Date: 20190607
  Receipt Date: 20190607
  Transmission Date: 20191004
  Serious: Yes (Other)
  Sender: FDA-Public Use
  Company Number: None

PATIENT
  Sex: Female
  Weight: 61.23 kg

DRUGS (3)
  1. LEVOTHYROXINE. [Concomitant]
     Active Substance: LEVOTHYROXINE
  2. LIOTHYRONINE [Concomitant]
     Active Substance: LIOTHYRONINE
  3. SKYLA [Suspect]
     Active Substance: LEVONORGESTREL

REACTIONS (7)
  - Loss of libido [None]
  - Pregnancy with contraceptive device [None]
  - Embedded device [None]
  - Vaginal haemorrhage [None]
  - Uterine perforation [None]
  - Abdominal pain [None]
  - Complication of pregnancy [None]
